FAERS Safety Report 6884771-0 (Version None)
Quarter: 2010Q3

REPORT INFORMATION
  Report Type: 
  Country: None (occurrence: None)
  Receive Date: 20100729
  Receipt Date: 20070901
  Transmission Date: 20110219
  Serious: Yes (Other)
  Sender: FDA-Public Use
  Company Number: US-PFIZER INC-2007059523

PATIENT
  Age: 39 Year
  Sex: Female
  Weight: 100.45 kg

DRUGS (4)
  1. CELEBREX [Suspect]
     Indication: INFLAMMATION
     Dates: start: 20070707
  2. CELEBREX [Suspect]
     Indication: ARTHRITIS
  3. VIVELLE [Concomitant]
  4. ACETAMINOPHEN [Concomitant]

REACTIONS (7)
  - ANXIETY [None]
  - DIZZINESS [None]
  - HYPERSENSITIVITY [None]
  - HYPOVENTILATION [None]
  - NAUSEA [None]
  - SWELLING [None]
  - THIRST [None]
